FAERS Safety Report 15097772 (Version 1)
Quarter: 2018Q2

REPORT INFORMATION
  Report Type: Spontaneous
  Country: US (occurrence: US)
  Receive Date: 20180611
  Receipt Date: 20180611
  Transmission Date: 20180711
  Serious: Yes (Other)
  Sender: FDA-Public Use
  Company Number: None

PATIENT
  Age: 67 Year
  Sex: Female
  Weight: 53.55 kg

DRUGS (22)
  1. ACCOLATE [Concomitant]
     Active Substance: ZAFIRLUKAST
  2. CITALOPRAM [Concomitant]
     Active Substance: CITALOPRAM HYDROBROMIDE
  3. LEVETIRACETAM. [Concomitant]
     Active Substance: LEVETIRACETAM
  4. DIAZEPAM. [Concomitant]
     Active Substance: DIAZEPAM
  5. MAGNESIUM CITRATE. [Concomitant]
     Active Substance: MAGNESIUM CITRATE
  6. MUPIROCIN. [Concomitant]
     Active Substance: MUPIROCIN
  7. TEMOZOLOMIDE. [Suspect]
     Active Substance: TEMOZOLOMIDE
     Indication: BRAIN NEOPLASM MALIGNANT
     Route: 048
     Dates: start: 20180427, end: 20180608
  8. LISINOPRIL. [Concomitant]
     Active Substance: LISINOPRIL
  9. VITAMIN D [Concomitant]
     Active Substance: CHOLECALCIFEROL
  10. METFORMIN [Concomitant]
     Active Substance: METFORMIN HYDROCHLORIDE
  11. NIFEDIPINE. [Concomitant]
     Active Substance: NIFEDIPINE
  12. PREDNISONE. [Concomitant]
     Active Substance: PREDNISONE
  13. SODIUM CHLORIDE. [Concomitant]
     Active Substance: SODIUM CHLORIDE
  14. BACTRIM [Concomitant]
     Active Substance: SULFAMETHOXAZOLE\TRIMETHOPRIM
  15. HYDROCODONE-APAP [Concomitant]
     Active Substance: ACETAMINOPHEN\HYDROCODONE
  16. IBUPROFEN. [Concomitant]
     Active Substance: IBUPROFEN
  17. RITALIN [Concomitant]
     Active Substance: METHYLPHENIDATE HYDROCHLORIDE
  18. LORATADINE. [Concomitant]
     Active Substance: LORATADINE
  19. TYLENOL [Concomitant]
     Active Substance: ACETAMINOPHEN
  20. FISH OIL [Concomitant]
     Active Substance: FISH OIL
  21. OXYCODONE [Concomitant]
     Active Substance: OXYCODONE
  22. POTASSIUM [Concomitant]
     Active Substance: POTASSIUM

REACTIONS (1)
  - Disease progression [None]
